FAERS Safety Report 10271669 (Version 1)
Quarter: 2014Q3

REPORT INFORMATION
  Report Type: Spontaneous
  Country: US (occurrence: US)
  Receive Date: 20140701
  Receipt Date: 20140701
  Transmission Date: 20150326
  Serious: No
  Sender: FDA-Public Use
  Company Number: US-SA-2013SA097196

PATIENT
  Age: 31 Year
  Sex: Male
  Weight: 88.45 kg

DRUGS (3)
  1. CEREZYME [Suspect]
     Active Substance: IMIGLUCERASE
     Indication: GAUCHER^S DISEASE
     Dosage: DOSE:55.7 UNIT(S)/KILOGRAM BODYWEIGHT
     Route: 042
     Dates: start: 20130731
  2. CEREZYME [Suspect]
     Active Substance: IMIGLUCERASE
     Indication: GAUCHER^S DISEASE
     Dosage: DOSE:54.26 UNIT(S)/KILOGRAM BODYWEIGHT
     Route: 042
     Dates: start: 20130812
  3. CEREZYME [Suspect]
     Active Substance: IMIGLUCERASE
     Indication: GAUCHER^S DISEASE
     Dosage: DOSE:55.7 UNIT(S)/KILOGRAM BODYWEIGHT
     Route: 042

REACTIONS (2)
  - Back pain [Recovered/Resolved]
  - Pain in extremity [Recovered/Resolved]

NARRATIVE: CASE EVENT DATE: 20130923
